FAERS Safety Report 20864946 (Version 1)
Quarter: 2022Q2

REPORT INFORMATION
  Report Type: Spontaneous
  Country: US (occurrence: US)
  Receive Date: 20220524
  Receipt Date: 20220524
  Transmission Date: 20220720
  Serious: No
  Sender: FDA-Public Use
  Company Number: US-TEVA-2022-US-2033323

PATIENT
  Sex: Male

DRUGS (1)
  1. TESTOSTERONE CYPIONATE [Suspect]
     Active Substance: TESTOSTERONE CYPIONATE
     Dosage: FORM STRENGTH:200 MG / ML,DOSAGE AND ROUTE OF ADMIN: UNKNOWN
     Route: 065

REACTIONS (2)
  - Sluggishness [Unknown]
  - Product deposit [Unknown]
